FAERS Safety Report 19615405 (Version 3)
Quarter: 2022Q1

REPORT INFORMATION
  Report Type: Spontaneous
  Country: BR (occurrence: BR)
  Receive Date: 20210727
  Receipt Date: 20220118
  Transmission Date: 20220423
  Serious: Yes (Disabling)
  Sender: FDA-Public Use
  Company Number: BR-BIOMARINAP-BR-2021-137740

PATIENT
  Age: 12 Year
  Sex: Male
  Weight: 59 kg

DRUGS (2)
  1. ALDURAZYME [Suspect]
     Active Substance: LARONIDASE
     Indication: Mucopolysaccharidosis
     Dosage: UNK,
     Route: 042
     Dates: start: 20160101
  2. ALDURAZYME [Suspect]
     Active Substance: LARONIDASE
     Dosage: 12 DOSAGE FORM, QW
     Route: 042
     Dates: start: 2019, end: 20211129

REACTIONS (8)
  - Pain in extremity [Recovering/Resolving]
  - Gait disturbance [Recovering/Resolving]
  - Influenza like illness [Recovered/Resolved]
  - Tendon discomfort [Recovering/Resolving]
  - Overweight [Unknown]
  - Drug hypersensitivity [Recovered/Resolved]
  - Erythema [Recovering/Resolving]
  - Inappropriate schedule of product administration [Unknown]

NARRATIVE: CASE EVENT DATE: 20160101
